FAERS Safety Report 12571152 (Version 26)
Quarter: 2020Q3

REPORT INFORMATION
  Report Type: Spontaneous
  Country: CA (occurrence: CA)
  Receive Date: 20160719
  Receipt Date: 20200928
  Transmission Date: 20201102
  Serious: Yes (Other)
  Sender: FDA-Public Use
  Company Number: CA-PFIZER INC-2016324063

PATIENT
  Age: 85 Year
  Sex: Male

DRUGS (21)
  1. DABIGATRAN [Suspect]
     Active Substance: DABIGATRAN
     Dosage: 2 DF, 1X/DAY
     Route: 065
  2. METOPROLOL. [Interacting]
     Active Substance: METOPROLOL
     Dosage: UNK
     Route: 065
  3. ATORVASTATIN CALCIUM. [Suspect]
     Active Substance: ATORVASTATIN CALCIUM
     Dosage: UNK
     Route: 065
  4. VITAMINS [Interacting]
     Active Substance: VITAMINS
     Dosage: UNK
     Route: 065
  5. DABIGATRAN [Suspect]
     Active Substance: DABIGATRAN
     Dosage: UNK, QD
     Route: 065
  6. PRADAX [Interacting]
     Active Substance: DABIGATRAN ETEXILATE MESYLATE
     Dosage: 2 DOSAGE FORM, QD
     Route: 065
  7. ASCORBIC ACID/ERGOCALCIFEROL/NICOTINAMIDE/RETINOL/RIBOFLAVIN [Suspect]
     Active Substance: VITAMINS
     Dosage: UNK
  8. DABIGATRAN [Suspect]
     Active Substance: DABIGATRAN
     Indication: ATRIAL FIBRILLATION
     Dosage: UNK UNK, BID
     Route: 065
  9. DABIGATRAN [Suspect]
     Active Substance: DABIGATRAN
     Dosage: 150 MILLIGRAM, BID
     Route: 065
  10. APO?WARFARIN [Interacting]
     Active Substance: WARFARIN SODIUM
     Indication: ATRIAL FIBRILLATION
     Dosage: UNK
     Route: 065
  11. PRADAX [Interacting]
     Active Substance: DABIGATRAN ETEXILATE MESYLATE
     Indication: ATRIAL FIBRILLATION
     Dosage: UNK, BID
     Route: 065
  12. ELIQUIS [Interacting]
     Active Substance: APIXABAN
     Indication: CEREBROVASCULAR ACCIDENT PROPHYLAXIS
     Dosage: 5 MILLIGRAM, BID
     Route: 065
     Dates: start: 201503
  13. PANTOLOC [Interacting]
     Active Substance: PANTOPRAZOLE SODIUM
     Dosage: UNK
     Route: 065
  14. DABIGATRAN [Suspect]
     Active Substance: DABIGATRAN
     Dosage: 150 MG, BID
     Route: 065
  15. DABIGATRAN [Suspect]
     Active Substance: DABIGATRAN
     Dosage: UNK, BID
     Route: 065
  16. PRADAX [Interacting]
     Active Substance: DABIGATRAN ETEXILATE MESYLATE
     Dosage: UNK UNK, QD
  17. PRADAX [Interacting]
     Active Substance: DABIGATRAN ETEXILATE MESYLATE
     Dosage: UNK UNK, BID
     Route: 065
  18. ELIQUIS [Interacting]
     Active Substance: APIXABAN
     Dosage: 5 MILLIGRAM, BID
     Route: 065
     Dates: start: 201604
  19. ELIQUIS [Interacting]
     Active Substance: APIXABAN
     Dosage: 2 DOSAGE FORM, DAILY
     Route: 065
  20. ASA [Interacting]
     Active Substance: ASPIRIN
     Dosage: UNK
     Route: 065
  21. ASPIRIN [ACETYLSALICYLIC ACID] [Suspect]
     Active Substance: ASPIRIN
     Dosage: UNK
     Route: 065

REACTIONS (3)
  - Drug interaction [Unknown]
  - Treatment failure [Unknown]
  - Cerebrovascular accident [Unknown]
